FAERS Safety Report 15152727 (Version 1)
Quarter: 2018Q4

REPORT INFORMATION
  Report Type: Other
  Country: RU (occurrence: RU)
  Receive Date: 20180717
  Receipt Date: 20180717
  Transmission Date: 20190204
  Serious: No
  Sender: FDA-Public Use
  Company Number: RU-LUPIN PHARMACEUTICALS INC.-2018-03759

PATIENT
  Age: 46 Year
  Sex: Female
  Weight: 72 kg

DRUGS (9)
  1. ISONIAZID. [Concomitant]
     Active Substance: ISONIAZID
     Indication: PULMONARY TUBERCULOSIS
     Dosage: UNK
     Route: 048
     Dates: start: 20120622, end: 20120703
  2. RIFAMPICIN [Concomitant]
     Active Substance: RIFAMPIN
     Indication: PULMONARY TUBERCULOSIS
     Dosage: UNK
     Route: 048
     Dates: start: 20120622, end: 20120703
  3. FENAZID [Suspect]
     Active Substance: FERROUS SULFATE DIHYDRATE\ISONIAZID
     Indication: PULMONARY TUBERCULOSIS
     Dosage: 0.25 G, BID
     Route: 048
     Dates: start: 20120711, end: 20120712
  4. PYRIDOXIN HYDROCHLORIDE [Concomitant]
     Dosage: UNK
     Route: 030
     Dates: start: 20120622, end: 20120703
  5. THIAMINE CHLORIDE                  /00056101/ [Concomitant]
     Dosage: UNK
     Route: 030
     Dates: start: 20120622, end: 20120703
  6. RIFABUTIN. [Suspect]
     Active Substance: RIFABUTIN
     Dosage: 0.3 G, QD
     Route: 048
     Dates: start: 20120711, end: 20120712
  7. PYRAZINAMIDE. [Suspect]
     Active Substance: PYRAZINAMIDE
     Indication: PULMONARY TUBERCULOSIS
     Dosage: UNK
     Route: 048
     Dates: start: 20120622, end: 20120703
  8. COMBUTOL [Concomitant]
     Active Substance: ETHAMBUTOL HYDROCHLORIDE
     Indication: PULMONARY TUBERCULOSIS
     Dosage: UNK
     Route: 048
     Dates: start: 20120622, end: 20120703
  9. ESSENTIALE                         /00022201/ [Concomitant]
     Indication: PROPHYLAXIS
     Dosage: UNK
     Route: 065
     Dates: start: 20120703, end: 20120708

REACTIONS (1)
  - Urticaria [Recovered/Resolved]

NARRATIVE: CASE EVENT DATE: 20120712
